FAERS Safety Report 13953781 (Version 1)
Quarter: 2017Q3

REPORT INFORMATION
  Report Type: Spontaneous
  Country: US (occurrence: US)
  Receive Date: 20170908
  Receipt Date: 20170908
  Transmission Date: 20171128
  Serious: Yes (Death, Life-Threatening, Hospitalization, Disabling)
  Sender: FDA-Public Use
  Company Number: None

PATIENT
  Age: 85 Year
  Sex: Female

DRUGS (6)
  1. CARVEDILOL. [Concomitant]
     Active Substance: CARVEDILOL
  2. ALBUTEROL. [Concomitant]
     Active Substance: ALBUTEROL
  3. ALTEPLASE. [Suspect]
     Active Substance: ALTEPLASE
     Indication: CEREBROVASCULAR ACCIDENT
     Dosage: ?          OTHER FREQUENCY:X1 DOSE;?
     Route: 042
     Dates: start: 20170521, end: 20170521
  4. LORAZEPAM. [Concomitant]
     Active Substance: LORAZEPAM
  5. ASPIRIN. [Concomitant]
     Active Substance: ASPIRIN
  6. NICARDIPINE [Concomitant]
     Active Substance: NICARDIPINE

REACTIONS (2)
  - Haemorrhagic stroke [None]
  - Brain herniation [None]

NARRATIVE: CASE EVENT DATE: 20170521
